FAERS Safety Report 9382363 (Version 4)
Quarter: 2013Q4

REPORT INFORMATION
  Report Type: Report from Study
  Country: HK (occurrence: HK)
  Receive Date: 20130703
  Receipt Date: 20131128
  Transmission Date: 20140711
  Serious: Yes (Hospitalization)
  Sender: FDA-Public Use
  Company Number: HK-BRISTOL-MYERS SQUIBB COMPANY-18800284

PATIENT
  Age: 72 Year
  Sex: Male

DRUGS (9)
  1. APIXABAN [Suspect]
     Indication: THROMBOSIS PROPHYLAXIS
     Route: 048
     Dates: start: 20100910, end: 20130218
  2. AMLODIPINE BESYLATE [Concomitant]
     Dates: start: 20100618
  3. ATORVASTATIN [Concomitant]
     Dates: start: 20070629
  4. DIGOXIN [Concomitant]
     Dates: start: 20050914
  5. FAMOTIDINE [Concomitant]
     Dates: start: 20050622
  6. LISINOPRIL [Concomitant]
     Dates: start: 20091218
  7. METOPROLOL TARTRATE [Concomitant]
     Dates: start: 20100319
  8. PRAZOSIN HCL [Concomitant]
     Dates: start: 20051012
  9. ZOPICLONE [Concomitant]
     Dates: start: 20121214

REACTIONS (1)
  - Lung consolidation [Recovered/Resolved]
